FAERS Safety Report 17455549 (Version 2)
Quarter: 2020Q2

REPORT INFORMATION
  Report Type: Spontaneous
  Country: CA (occurrence: CA)
  Receive Date: 20200225
  Receipt Date: 20200518
  Transmission Date: 20200713
  Serious: Yes (Death, Hospitalization, Other)
  Sender: FDA-Public Use
  Company Number: CA-TEVA-2020-CA-1188816

PATIENT
  Sex: Female

DRUGS (9)
  1. FEIBA NF [Suspect]
     Active Substance: ANTI-INHIBITOR COAGULANT COMPLEX
     Indication: ACQUIRED HAEMOPHILIA
     Route: 042
  2. NIASTASE [Suspect]
     Active Substance: COAGULATION FACTOR VIIA RECOMBINANT HUMAN
     Indication: ACQUIRED HAEMOPHILIA
     Route: 042
  3. CYCLOPHOSPHAMIDE. [Suspect]
     Active Substance: CYCLOPHOSPHAMIDE
     Indication: PRODUCT USED FOR UNKNOWN INDICATION
     Route: 065
  4. PREDNISONE. [Suspect]
     Active Substance: PREDNISONE
     Indication: PRODUCT USED FOR UNKNOWN INDICATION
     Route: 065
  5. RITUXIMAB. [Suspect]
     Active Substance: RITUXIMAB
     Indication: PRODUCT USED FOR UNKNOWN INDICATION
     Route: 065
  6. FACTOR VIII [Suspect]
     Active Substance: ANTIHEMOPHILIC FACTOR HUMAN
     Indication: PRODUCT USED FOR UNKNOWN INDICATION
     Route: 065
  7. FACTOR VII (PROCONVERTIN) [Suspect]
     Active Substance: COAGULATION FACTOR VII HUMAN
     Indication: ACQUIRED HAEMOPHILIA
     Route: 065
  8. FACTOR VIII [Suspect]
     Active Substance: ANTIHEMOPHILIC FACTOR HUMAN
     Indication: ACQUIRED HAEMOPHILIA
  9. PROCYTOX [Suspect]
     Active Substance: CYCLOPHOSPHAMIDE
     Indication: PRODUCT USED FOR UNKNOWN INDICATION
     Route: 042

REACTIONS (4)
  - Acquired haemophilia [Fatal]
  - Pre-existing disease [Fatal]
  - Therapy responder [Fatal]
  - Therapy partial responder [Fatal]
